FAERS Safety Report 17867225 (Version 3)
Quarter: 2020Q2

REPORT INFORMATION
  Report Type: Report from Study
  Country: None (occurrence: US)
  Receive Date: 20200605
  Receipt Date: 20200625
  Transmission Date: 20200714
  Serious: Yes (Hospitalization)
  Sender: FDA-Public Use
  Company Number: US-ABBVIE-20P-163-3422463-00

PATIENT
  Age: 30 Year
  Sex: Male

DRUGS (13)
  1. FERROUS GLUCONATE [Concomitant]
     Active Substance: FERROUS GLUCONATE
     Indication: ANAEMIA
     Route: 048
     Dates: start: 2017
  2. SUPER B ENERGY COMPLEX [Concomitant]
     Indication: SUPPLEMENTATION THERAPY
     Route: 048
     Dates: start: 20180501
  3. RISANKIZUMAB [Suspect]
     Active Substance: RISANKIZUMAB
     Indication: COLITIS ULCERATIVE
     Route: 058
     Dates: start: 20191106
  4. ONE A DAY MEN^S HEALTH FORMULA [Concomitant]
     Active Substance: VITAMINS
     Indication: VITAMIN SUPPLEMENTATION
     Route: 048
     Dates: start: 2016
  5. LIALDA [Concomitant]
     Active Substance: MESALAMINE
     Indication: COLITIS ULCERATIVE
     Route: 048
     Dates: start: 201504
  6. TUMS [Concomitant]
     Active Substance: CALCIUM CARBONATE
     Indication: GASTROOESOPHAGEAL REFLUX DISEASE
  7. FISH OIL WITH OMEGA 3 [Concomitant]
     Indication: SUPPLEMENTATION THERAPY
     Route: 048
     Dates: start: 20180501
  8. KETOROLAC TROMETHAMINE. [Concomitant]
     Active Substance: KETOROLAC TROMETHAMINE
     Indication: EPISCLERITIS
     Route: 047
     Dates: start: 20180510
  9. RISANKIZUMAB [Suspect]
     Active Substance: RISANKIZUMAB
     Indication: COLITIS ULCERATIVE
     Route: 058
     Dates: start: 20181008, end: 20190904
  10. ROBITUSSIN (GUAIFENESIN) [Concomitant]
     Active Substance: GUAIFENESIN
     Indication: NASOPHARYNGITIS
     Route: 048
     Dates: start: 20191227
  11. LOMOTIL [Concomitant]
     Active Substance: ATROPINE SULFATE\DIPHENOXYLATE HYDROCHLORIDE
     Indication: COLITIS ULCERATIVE
     Route: 048
     Dates: start: 201710
  12. TURMERIC CURUMN [Concomitant]
     Indication: PHYTOTHERAPY
     Route: 048
     Dates: start: 20180501
  13. TUMS [Concomitant]
     Active Substance: CALCIUM CARBONATE
     Indication: DYSPEPSIA
     Route: 048
     Dates: start: 2016

REACTIONS (1)
  - Pneumonia staphylococcal [Not Recovered/Not Resolved]

NARRATIVE: CASE EVENT DATE: 20200526
